FAERS Safety Report 16276502 (Version 1)
Quarter: 2019Q2

REPORT INFORMATION
  Report Type: Spontaneous
  Country: IT (occurrence: IT)
  Receive Date: 20190506
  Receipt Date: 20190506
  Transmission Date: 20190711
  Serious: Yes (Other)
  Sender: FDA-Public Use
  Company Number: IT-TEVA-2019-IT-1045402

PATIENT
  Age: 60 Year
  Sex: Female

DRUGS (6)
  1. ANASTROZOLO TEVA [Suspect]
     Active Substance: ANASTROZOLE
     Dates: start: 20190101, end: 20190412
  2. ALPRAZOLAM. [Concomitant]
     Active Substance: ALPRAZOLAM
  3. RIFAXIMIN. [Concomitant]
     Active Substance: RIFAXIMIN
     Route: 048
  4. BISOPROLOL FUMARATE. [Concomitant]
     Active Substance: BISOPROLOL FUMARATE
     Route: 048
  5. OLMESARTAN MEDOXOMIL. [Concomitant]
     Active Substance: OLMESARTAN MEDOXOMIL
     Route: 048
  6. DIBASE [Concomitant]
     Active Substance: CHOLECALCIFEROL
     Route: 048

REACTIONS (7)
  - Loss of consciousness [Not Recovered/Not Resolved]
  - Fluid retention [Not Recovered/Not Resolved]
  - Dry skin [Not Recovered/Not Resolved]
  - Tendonitis [Not Recovered/Not Resolved]
  - Asthenia [Not Recovered/Not Resolved]
  - Hypotension [Not Recovered/Not Resolved]
  - Muscle spasms [Not Recovered/Not Resolved]

NARRATIVE: CASE EVENT DATE: 20190412
